FAERS Safety Report 6519099-1 (Version None)
Quarter: 2009Q4

REPORT INFORMATION
  Report Type: 
  Country: None (occurrence: None)
  Receive Date: 20091228
  Receipt Date: 20091218
  Transmission Date: 20100525
  Serious: Yes (Hospitalization)
  Sender: FDA-Public Use
  Company Number: FR-BAYER-200943349GPV

PATIENT
  Age: 21 Year
  Sex: Female
  Weight: 33 kg

DRUGS (12)
  1. CIFLOX [Suspect]
     Indication: DRUG USE FOR UNKNOWN INDICATION
     Dosage: UNIT DOSE: 750 MG
     Route: 042
     Dates: start: 20090901, end: 20090905
  2. CIFLOX [Suspect]
     Route: 065
     Dates: start: 20090701
  3. CIFLOX [Suspect]
     Route: 065
     Dates: start: 20080101
  4. CIFLOX [Suspect]
     Route: 065
     Dates: start: 20060101
  5. CIFLOX [Suspect]
     Route: 065
     Dates: start: 20050101
  6. PRIMPERAN TAB [Suspect]
     Indication: DRUG USE FOR UNKNOWN INDICATION
     Route: 048
     Dates: start: 20090801, end: 20090905
  7. INSULINOTHERAPY [Concomitant]
     Indication: DRUG USE FOR UNKNOWN INDICATION
     Route: 065
     Dates: start: 20081001
  8. FORTUM [Concomitant]
     Indication: DRUG USE FOR UNKNOWN INDICATION
     Route: 065
     Dates: start: 20091005
  9. FORTUM [Concomitant]
     Route: 065
     Dates: start: 20090901, end: 20090905
  10. FORTUM [Concomitant]
     Route: 065
     Dates: start: 20090908
  11. AMIKLIN [Concomitant]
     Indication: DRUG USE FOR UNKNOWN INDICATION
     Route: 065
     Dates: start: 20090908
  12. AMIKLIN [Concomitant]
     Route: 065
     Dates: start: 20091005

REACTIONS (5)
  - ARTHRALGIA [None]
  - GENERAL PHYSICAL HEALTH DETERIORATION [None]
  - PYREXIA [None]
  - SPUTUM INCREASED [None]
  - VASCULAR PURPURA [None]
